FAERS Safety Report 17865783 (Version 1)
Quarter: 2020Q2

REPORT INFORMATION
  Report Type: Spontaneous
  Country: US (occurrence: US)
  Receive Date: 20200605
  Receipt Date: 20200605
  Transmission Date: 20200714
  Serious: Yes (Hospitalization, Other)
  Sender: FDA-Public Use
  Company Number: US-AMGEN-USASP2020086680

PATIENT
  Age: 35 Year
  Sex: Female
  Weight: 60.8 kg

DRUGS (1)
  1. FILGRASTIM [Suspect]
     Active Substance: FILGRASTIM
     Indication: PRODUCT USED FOR UNKNOWN INDICATION
     Dosage: 7.8 MICROGRAM/KILOGRAM (ONE DOSE EACH ON DAYS 5 AND 8)
     Route: 058

REACTIONS (4)
  - Neutropenia [Recovered/Resolved]
  - Tachycardia [Recovered/Resolved]
  - COVID-19 [Recovered/Resolved]
  - Hypotension [Recovered/Resolved]

NARRATIVE: CASE EVENT DATE: 202003
